FAERS Safety Report 25168471 (Version 1)
Quarter: 2025Q2

REPORT INFORMATION
  Report Type: Spontaneous
  Country: US (occurrence: None)
  Receive Date: 20250407
  Receipt Date: 20250407
  Transmission Date: 20250717
  Serious: Yes (Hospitalization)
  Sender: FDA-CTU
  Company Number: None

PATIENT
  Age: 65 Year
  Sex: Male

DRUGS (2)
  1. AMBRISENTAN [Suspect]
     Active Substance: AMBRISENTAN
     Indication: Pulmonary arterial hypertension
     Dosage: 10 MG DAILY ORAL
     Route: 048
     Dates: start: 20220913
  2. TADALAFIL [Suspect]
     Active Substance: TADALAFIL
     Indication: Pulmonary arterial hypertension
     Dosage: 40 M,G DAILY ORAL
     Route: 048
     Dates: start: 20220914

REACTIONS (1)
  - Haemoglobin decreased [None]

NARRATIVE: CASE EVENT DATE: 20250405
